FAERS Safety Report 7962597-4 (Version None)
Quarter: 2011Q4

REPORT INFORMATION
  Report Type: 
  Country: None (occurrence: None)
  Receive Date: 20111207
  Receipt Date: 20111206
  Transmission Date: 20120403
  Serious: Yes (Hospitalization, Other)
  Sender: FDA-Public Use
  Company Number: SE-PFIZER INC-2011051595

PATIENT
  Age: 24 Year
  Sex: Male
  Weight: 85 kg

DRUGS (6)
  1. VALPROATE SODIUM [Concomitant]
     Dosage: UNK
  2. PROPAVAN [Concomitant]
     Dosage: 25 MG, 1X/DAY
     Dates: start: 20100202, end: 20100220
  3. LYRICA [Suspect]
     Indication: DEPRESSION
  4. LYRICA [Suspect]
     Indication: ANXIETY
     Dosage: 75 MG, 2X/DAY
     Route: 048
     Dates: start: 20100201, end: 20100215
  5. ESCITALOPRAM [Concomitant]
     Dosage: 15 MG, 1X/DAY
     Dates: start: 20090301, end: 20100220
  6. THERALEN [Concomitant]
     Dosage: 5 MG, AS NEEDED
     Dates: start: 20090803

REACTIONS (8)
  - VISUAL FIELD DEFECT [None]
  - PERSONALITY DISORDER [None]
  - VISUAL IMPAIRMENT [None]
  - BIPOLAR DISORDER [None]
  - VISION BLURRED [None]
  - PHOTOPSIA [None]
  - DEPERSONALISATION [None]
  - DEPRESSION [None]
